FAERS Safety Report 24148188 (Version 5)
Quarter: 2024Q3

REPORT INFORMATION
  Report Type: Report from Study
  Country: DE (occurrence: DE)
  Receive Date: 20240729
  Receipt Date: 20240822
  Transmission Date: 20241017
  Serious: Yes (Hospitalization, Other)
  Sender: PFIZER
  Company Number: DE-PFM-2024-04178

PATIENT
  Sex: Female
  Weight: 48 kg

DRUGS (15)
  1. BRAFTOVI [Suspect]
     Active Substance: ENCORAFENIB
     Indication: Colorectal cancer
     Dosage: 300 MG
     Route: 048
     Dates: start: 20240404, end: 20240708
  2. CETUXIMAB [Suspect]
     Active Substance: CETUXIMAB
     Indication: Colorectal cancer
     Dosage: 250 MG/M2
     Route: 042
     Dates: start: 20240404, end: 20240708
  3. CETUXIMAB [Suspect]
     Active Substance: CETUXIMAB
     Dosage: 250 MG/M2
     Route: 042
     Dates: start: 20240708
  4. ASPIRIN [Concomitant]
     Active Substance: ASPIRIN
     Indication: Coronary artery disease
     Dosage: 100 MG, DAILY
     Route: 048
  5. MCP [Concomitant]
     Active Substance: METOCLOPRAMIDE HYDROCHLORIDE
     Indication: Prophylaxis
     Dosage: 10 MG, PRN (AS NEEDED)
     Route: 048
     Dates: start: 202308
  6. PANTOPRAZOL BETA [Concomitant]
     Indication: Prophylaxis
     Dosage: 40 MG, DAILY
     Route: 048
     Dates: start: 202402
  7. ACETAMINOPHEN [Concomitant]
     Active Substance: ACETAMINOPHEN
     Indication: Prophylaxis
     Dosage: UNKNOWN DOSE (MG, PRN) (AS NEEDED)
     Route: 048
     Dates: start: 202403
  8. ACETAMINOPHEN\CAFFEINE\PROPYPHENAZONE [Concomitant]
     Active Substance: ACETAMINOPHEN\CAFFEINE\PROPYPHENAZONE
     Indication: Prophylaxis
     Dosage: 40 DROPS, QID (4/DAY)
     Route: 048
     Dates: start: 202403
  9. HYDROMORPHON HEXAL [Concomitant]
     Indication: Prophylaxis
     Dosage: 2 MG, BID (2/DAY)
     Route: 048
     Dates: start: 202403, end: 20240610
  10. HYDROMORPHON HEXAL [Concomitant]
     Dosage: 4 MG, BID (2/DAY)
     Route: 048
     Dates: start: 20240611
  11. DIMETHINDENE [Concomitant]
     Active Substance: DIMETHINDENE
     Indication: Prophylaxis
     Dosage: 4 MG, CYCLICAL
     Route: 042
     Dates: start: 20240404
  12. GRANISETRON [Concomitant]
     Active Substance: GRANISETRON
     Indication: Prophylaxis
     Dosage: 1 MG, CYCLICAL
     Route: 042
     Dates: start: 20240404
  13. DEXAMETHASONE [Concomitant]
     Active Substance: DEXAMETHASONE
     Indication: Prophylaxis
     Dosage: 12 MG, CYCLICAL
     Route: 042
     Dates: start: 20240404
  14. PROPIVERINA [Concomitant]
     Indication: Diagnostic procedure
     Dosage: 15 MG, TID (3/DAY)
     Route: 048
     Dates: start: 20240509, end: 20240523
  15. HYDROMORPHON AKUT [Concomitant]
     Indication: Prophylaxis
     Dosage: 1.3 MG, PRN (AS NEEDED)
     Route: 048
     Dates: start: 20240611

REACTIONS (3)
  - Nausea [Not Recovered/Not Resolved]
  - Vomiting [Not Recovered/Not Resolved]
  - Diarrhoea [Not Recovered/Not Resolved]

NARRATIVE: CASE EVENT DATE: 20240701
